FAERS Safety Report 18762478 (Version 1)
Quarter: 2021Q1

REPORT INFORMATION
  Report Type: Spontaneous
  Country: US (occurrence: US)
  Receive Date: 20210119
  Receipt Date: 20210119
  Transmission Date: 20210419
  Serious: No
  Sender: FDA-Public Use
  Company Number: None

PATIENT
  Age: 53 Year
  Sex: Male
  Weight: 105.75 kg

DRUGS (4)
  1. ULORIC [Concomitant]
     Active Substance: FEBUXOSTAT
  2. JAKAFI [Suspect]
     Active Substance: RUXOLITINIB
     Route: 048
  3. VITAMIN C [Concomitant]
     Active Substance: ASCORBIC ACID
  4. VITAMIN B12 [Concomitant]
     Active Substance: CYANOCOBALAMIN

REACTIONS (2)
  - Weight increased [None]
  - Accident [None]
